FAERS Safety Report 21458336 (Version 1)
Quarter: 2022Q4

REPORT INFORMATION
  Report Type: Spontaneous
  Country: JP (occurrence: JP)
  Receive Date: 20221014
  Receipt Date: 20221014
  Transmission Date: 20230113
  Serious: Yes (Hospitalization)
  Sender: FDA-Public Use
  Company Number: JP-OTSUKA-2022_046791

PATIENT
  Age: 9 Decade
  Sex: Female

DRUGS (5)
  1. SAMSCA [Suspect]
     Active Substance: TOLVAPTAN
     Indication: Cardiac failure
     Dosage: 7.5 MG/DAY, AFTER BREAKFAST
     Route: 048
     Dates: start: 20220823, end: 20220926
  2. TORSEMIDE [Concomitant]
     Active Substance: TORSEMIDE
     Indication: Product used for unknown indication
     Dosage: 4 MG/DAY
     Route: 048
     Dates: end: 20220919
  3. TORSEMIDE [Concomitant]
     Active Substance: TORSEMIDE
     Dosage: 1 MG/DAY
     Route: 048
     Dates: start: 20220920, end: 20220926
  4. DAPAGLIFLOZIN [Concomitant]
     Active Substance: DAPAGLIFLOZIN
     Indication: Diabetes mellitus
     Dosage: UNK
     Route: 048
     Dates: end: 20220926
  5. SPIRONOLACTONE [Concomitant]
     Active Substance: SPIRONOLACTONE
     Indication: Product used for unknown indication
     Dosage: UNK
     Route: 048
     Dates: end: 20220926

REACTIONS (10)
  - COVID-19 [Unknown]
  - Insomnia [Unknown]
  - Malaise [Unknown]
  - Nausea [Unknown]
  - Decreased appetite [Unknown]
  - Fluid intake reduced [Unknown]
  - Polydipsia [Unknown]
  - Thirst [Unknown]
  - Polyuria [Unknown]
  - Drug monitoring procedure incorrectly performed [Unknown]

NARRATIVE: CASE EVENT DATE: 20220901
